FAERS Safety Report 5749029-1 (Version None)
Quarter: 2008Q2

REPORT INFORMATION
  Report Type: 
  Country: None (occurrence: None)
  Receive Date: 20080527
  Receipt Date: 20080521
  Transmission Date: 20081010
  Serious: Yes (Death)
  Sender: FDA-Public Use
  Company Number: US-BRISTOL-MYERS SQUIBB COMPANY-14200596

PATIENT

DRUGS (2)
  1. CARMUSTINE [Suspect]
     Indication: MALIGNANT GLIOMA
     Route: 042
  2. RADIOTHERAPY [Suspect]

REACTIONS (1)
  - DEATH [None]
